FAERS Safety Report 18738725 (Version 2)
Quarter: 2021Q1

REPORT INFORMATION
  Report Type: Report from Study
  Country: US (occurrence: US)
  Receive Date: 20210114
  Receipt Date: 20210218
  Transmission Date: 20210419
  Serious: No
  Sender: FDA-Public Use
  Company Number: NVSC2021US006729

PATIENT
  Sex: Female

DRUGS (1)
  1. PIQRAY [Suspect]
     Active Substance: ALPELISIB
     Indication: PRODUCT USED FOR UNKNOWN INDICATION
     Dosage: 1 DF, BID
     Route: 048

REACTIONS (6)
  - Product supply issue [Unknown]
  - Asthenia [Unknown]
  - Memory impairment [Unknown]
  - Nausea [Unknown]
  - Product prescribing error [Unknown]
  - Product dose omission issue [Unknown]
